FAERS Safety Report 7312601-1 (Version None)
Quarter: 2011Q1

REPORT INFORMATION
  Report Type: 
  Country: None (occurrence: None)
  Receive Date: 20110224
  Receipt Date: 20100126
  Transmission Date: 20110831
  Serious: No
  Sender: FDA-Public Use
  Company Number: US-MYLANLABS-2008S1021560

PATIENT
  Age: 50 Year
  Sex: Male
  Weight: 90.72 kg

DRUGS (9)
  1. ATENOLOL [Suspect]
     Route: 048
  2. ATENOLOL [Suspect]
     Indication: ATRIAL FIBRILLATION
     Route: 048
     Dates: start: 20070101, end: 20080701
  3. ATENOLOL [Suspect]
     Route: 048
  4. ATENOLOL [Suspect]
     Route: 048
  5. ASA [Concomitant]
     Route: 048
     Dates: start: 20070101
  6. BUSPAR [Concomitant]
     Indication: ANXIETY
     Route: 048
  7. ATENOLOL [Suspect]
  8. ATENOLOL [Suspect]
     Route: 048
     Dates: start: 20080901
  9. XANAX [Concomitant]
     Indication: ANXIETY
     Route: 048

REACTIONS (4)
  - PAIN IN EXTREMITY [None]
  - EXTRASYSTOLES [None]
  - INSOMNIA [None]
  - DRUG INEFFECTIVE FOR UNAPPROVED INDICATION [None]
